FAERS Safety Report 15757025 (Version 2)
Quarter: 2019Q1

REPORT INFORMATION
  Report Type: Spontaneous
  Country: US (occurrence: US)
  Receive Date: 20181224
  Receipt Date: 20190128
  Transmission Date: 20190417
  Serious: Yes (Other)
  Sender: FDA-Public Use
  Company Number: US-PFIZER INC-2018522381

PATIENT
  Sex: Female

DRUGS (1)
  1. TORISEL [Suspect]
     Active Substance: TEMSIROLIMUS
     Dosage: UNK

REACTIONS (6)
  - Asthenia [Unknown]
  - Choking [Unknown]
  - Polyuria [Unknown]
  - Dry skin [Unknown]
  - Diabetes mellitus [Unknown]
  - Platelet count decreased [Unknown]
